FAERS Safety Report 26207719 (Version 1)
Quarter: 2025Q4

REPORT INFORMATION
  Report Type: Spontaneous
  Country: US (occurrence: None)
  Receive Date: 20251225
  Receipt Date: 20251225
  Transmission Date: 20260118
  Serious: Yes (Other)
  Sender: FDA-CTU
  Company Number: None

PATIENT

DRUGS (1)
  1. AJOVY [Suspect]
     Active Substance: FREMANEZUMAB-VFRM
     Indication: Migraine prophylaxis
     Dates: start: 20231210, end: 20251217

REACTIONS (2)
  - Blood pressure increased [None]
  - Blood calcium decreased [None]

NARRATIVE: CASE EVENT DATE: 20251217
